FAERS Safety Report 15255680 (Version 1)
Quarter: 2018Q3

REPORT INFORMATION
  Report Type: Spontaneous
  Country: US (occurrence: US)
  Receive Date: 20180717
  Receipt Date: 20180717
  Transmission Date: 20181010
  Serious: Yes (Other)
  Sender: FDA-Public Use
  Company Number: None

PATIENT
  Age: 80 Year
  Sex: Female
  Weight: 113.4 kg

DRUGS (13)
  1. ELQUIS [Concomitant]
  2. LIPITOR [Concomitant]
     Active Substance: ATORVASTATIN CALCIUM
  3. BYSTLOC [Concomitant]
  4. IRON [Concomitant]
     Active Substance: IRON
  5. LORSARTAN POTASSIUM [Concomitant]
  6. CLONAZAPAM [Concomitant]
     Active Substance: CLONAZEPAM
  7. OMENPREOZOLE [Concomitant]
  8. ANORO ELLIPTA [Suspect]
     Active Substance: UMECLIDINIUM BROMIDE\VILANTEROL TRIFENATATE
  9. VESACARE [Concomitant]
  10. COLACE [Concomitant]
     Active Substance: DOCUSATE SODIUM
  11. CITALOPRAM [Concomitant]
     Active Substance: CITALOPRAM HYDROBROMIDE
  12. TRAMADOL HCL [Concomitant]
     Active Substance: TRAMADOL HYDROCHLORIDE
  13. NITRO PATCH [Concomitant]
     Active Substance: NITROGLYCERIN

REACTIONS (2)
  - Aphonia [None]
  - Dysphonia [None]

NARRATIVE: CASE EVENT DATE: 20180615
